FAERS Safety Report 9795977 (Version 1)
Quarter: 2014Q1

REPORT INFORMATION
  Report Type: Report from Study
  Country: US (occurrence: US)
  Receive Date: 20140103
  Receipt Date: 20140103
  Transmission Date: 20141002
  Serious: Yes (Other)
  Sender: FDA-Public Use
  Company Number: US-US-EMD SERONO, INC.-7260633

PATIENT
  Age: 53 Year
  Sex: Male

DRUGS (1)
  1. REBIF [Suspect]
     Indication: MULTIPLE SCLEROSIS
     Route: 058
     Dates: start: 20130310

REACTIONS (4)
  - Ligament disorder [Recovering/Resolving]
  - Spinal cord compression [Recovering/Resolving]
  - Orchitis [Unknown]
  - Multiple sclerosis relapse [Unknown]
